FAERS Safety Report 6969049-9 (Version None)
Quarter: 2010Q3

REPORT INFORMATION
  Report Type: 
  Country: None (occurrence: None)
  Receive Date: 20100903
  Receipt Date: 20100903
  Transmission Date: 20110219
  Serious: No
  Sender: FDA-Public Use
  Company Number: None

PATIENT
  Age: 26 Year
  Sex: Female
  Weight: 57.1532 kg

DRUGS (1)
  1. VOLTAREN DICLOFENAC SODIUM 1% ENDO/ NOVARTIS [Suspect]
     Indication: BURSITIS
     Dates: start: 20100811, end: 20100813

REACTIONS (2)
  - RASH [None]
  - URTICARIA [None]
